FAERS Safety Report 7503294-9 (Version None)
Quarter: 2011Q2

REPORT INFORMATION
  Report Type: 
  Country: None (occurrence: None)
  Receive Date: 20110525
  Receipt Date: 20110516
  Transmission Date: 20111010
  Serious: Yes (Death)
  Sender: FDA-Public Use
  Company Number: FR-ACTELION-A-CH2011-48386

PATIENT
  Sex: Female

DRUGS (5)
  1. RAMIPRIL [Concomitant]
  2. ALDACTONE [Concomitant]
  3. CORDARONE [Concomitant]
  4. TRACLEER [Suspect]
     Indication: SKIN ULCER
     Dosage: 125 MG, BID
     Route: 048
     Dates: start: 20081204, end: 20101215
  5. TRACLEER [Suspect]
     Dosage: 62.5 MG, BID
     Route: 048
     Dates: start: 20081104, end: 20081203

REACTIONS (1)
  - CARDIAC FAILURE CHRONIC [None]
